FAERS Safety Report 7826918-5 (Version None)
Quarter: 2011Q4

REPORT INFORMATION
  Report Type: 
  Country: None (occurrence: None)
  Receive Date: 20111018
  Receipt Date: 20111005
  Transmission Date: 20120403
  Serious: Yes (Other)
  Sender: FDA-Public Use
  Company Number: AUR-APL-2011-05135

PATIENT
  Age: 21 Year
  Sex: Female

DRUGS (5)
  1. CETIRIZINE [Suspect]
     Indication: HYPERSENSITIVITY
     Dosage: 1 DOSAGE FORMS (1 DOSAGE FORMS, 1 IN 1 D), ORAL
     Route: 048
  2. CETIRIZINE [Suspect]
     Indication: SWELLING
     Dosage: 1 DOSAGE FORMS (1 DOSAGE FORMS, 1 IN 1 D), ORAL
     Route: 048
  3. CETIRIZINE [Suspect]
     Indication: HYPERSENSITIVITY
     Dosage: 1 DOSAGE FORMS (1 DOSAGE FORMS, 1 IN 1 D), ORAL
     Route: 048
     Dates: start: 20061116, end: 20110501
  4. CETIRIZINE [Suspect]
     Indication: SWELLING
     Dosage: 1 DOSAGE FORMS (1 DOSAGE FORMS, 1 IN 1 D), ORAL
     Route: 048
     Dates: start: 20061116, end: 20110501
  5. LAMICTAL [Concomitant]

REACTIONS (2)
  - OFF LABEL USE [None]
  - EPILEPSY [None]
